FAERS Safety Report 13602531 (Version 1)
Quarter: 2017Q2

REPORT INFORMATION
  Report Type: Spontaneous
  Country: JP (occurrence: JP)
  Receive Date: 20170601
  Receipt Date: 20170601
  Transmission Date: 20170830
  Serious: Yes (Other)
  Sender: FDA-Public Use
  Company Number: JP-ALLERGAN-1722558US

PATIENT
  Age: 39 Year
  Sex: Male
  Weight: 55 kg

DRUGS (2)
  1. URSO [Concomitant]
     Active Substance: URSODIOL
     Indication: PRODUCT USED FOR UNKNOWN INDICATION
     Route: 065
  2. ACAMPROSATE CALCIUM - BP [Suspect]
     Active Substance: ACAMPROSATE CALCIUM
     Indication: ALCOHOLISM
     Dosage: 1998 MG, QD
     Route: 048
     Dates: start: 20151028

REACTIONS (1)
  - Korsakoff^s syndrome [Unknown]

NARRATIVE: CASE EVENT DATE: 20170310
